FAERS Safety Report 5501905-0 (Version None)
Quarter: 2007Q4

REPORT INFORMATION
  Report Type: 
  Country: None (occurrence: None)
  Receive Date: 20071030
  Receipt Date: 20071019
  Transmission Date: 20080405
  Serious: Yes (Other)
  Sender: FDA-Public Use
  Company Number: GB-ROCHE-526744

PATIENT
  Age: 67 Year
  Sex: Female
  Weight: 77 kg

DRUGS (8)
  1. ORLISTAT [Suspect]
     Indication: OBESITY
     Route: 048
     Dates: start: 20070302
  2. QUININE SULFATE [Concomitant]
     Dosage: DOSE TAKEN FOR MORE THAN 2 YEARS
     Route: 048
  3. AMISULPRIDE [Concomitant]
     Dosage: DOSE TAKEN FOR MORE THAN 2 YEARS
     Route: 048
  4. AMITRIPTYLINE HCL [Concomitant]
     Indication: PAIN
     Dosage: DOSE TAKEN FOR MORE THAN 2 YEARS.
     Route: 048
  5. CODEINE SUL TAB [Concomitant]
     Indication: PAIN
     Dosage: DOSE TAKEN FOR MORE THAN 2 YEARS.
     Route: 048
  6. IBUPROFEN [Concomitant]
     Indication: PAIN
     Dosage: DOSE TAKEN FOR MORE THAN 2 YEARS
     Route: 048
  7. PREMARIN [Concomitant]
     Indication: MENOPAUSE
     Route: 048
     Dates: start: 19870101, end: 20071018
  8. SIMVASTATIN [Concomitant]
     Dosage: DOSE TAKEN FOR MORE THAN 2 YEARS
     Route: 048

REACTIONS (2)
  - CHEST PAIN [None]
  - MYOCARDIAL INFARCTION [None]
